FAERS Safety Report 8318139-7 (Version None)
Quarter: 2012Q2

REPORT INFORMATION
  Report Type: 
  Country: None (occurrence: None)
  Receive Date: 20120427
  Receipt Date: 20120425
  Transmission Date: 20120825
  Serious: Yes (Hospitalization, Other)
  Sender: FDA-Public Use
  Company Number: JP-PFIZER INC-2012075305

PATIENT
  Age: 52 Year
  Sex: Male
  Weight: 55.3 kg

DRUGS (6)
  1. CHONDROITIN [Concomitant]
     Dosage: UNK
  2. VARENICLINE TARTRATE [Suspect]
     Dosage: 1 MG, 2X/DAY
     Route: 048
     Dates: start: 20120322, end: 20120322
  3. ZINC [Concomitant]
     Dosage: UNK
  4. VARENICLINE TARTRATE [Suspect]
     Indication: SMOKING CESSATION THERAPY
     Dosage: 0.5 MG, 1X/DAY
     Route: 048
     Dates: start: 20120315, end: 20120317
  5. VARENICLINE TARTRATE [Suspect]
     Dosage: 0.5 MG, 2X/DAY
     Route: 048
     Dates: start: 20120318, end: 20120321
  6. LEVITRA [Suspect]
     Indication: ERECTILE DYSFUNCTION
     Dosage: UNK
     Dates: start: 20120315

REACTIONS (1)
  - CEREBRAL INFARCTION [None]
